FAERS Safety Report 8431276-1 (Version None)
Quarter: 2012Q2

REPORT INFORMATION
  Report Type: 
  Country: None (occurrence: None)
  Receive Date: 20120613
  Receipt Date: 20120606
  Transmission Date: 20120825
  Serious: Yes (Hospitalization)
  Sender: FDA-Public Use
  Company Number: US-BIOGENIDEC-2012BI010518

PATIENT
  Age: 40 Year
  Sex: Female

DRUGS (7)
  1. TRAZODONE HCL [Concomitant]
     Route: 048
  2. BUPROPION HCL [Concomitant]
     Route: 048
  3. CLONAZEPAM [Concomitant]
     Route: 048
  4. TOPAMAX [Concomitant]
     Route: 048
  5. IBUPROFEN [Concomitant]
     Indication: PAIN
     Route: 048
     Dates: start: 20080729
  6. PRISTIQ [Concomitant]
     Route: 048
  7. TYSABRI [Suspect]
     Indication: MULTIPLE SCLEROSIS
     Route: 042
     Dates: start: 20080117

REACTIONS (1)
  - OSTEOARTHRITIS [None]
